FAERS Safety Report 9101873 (Version 1)
Quarter: 2013Q1

REPORT INFORMATION
  Report Type: Spontaneous
  Country: PH (occurrence: PH)
  Receive Date: 20130218
  Receipt Date: 20130218
  Transmission Date: 20140127
  Serious: Yes (Other)
  Sender: FDA-Public Use
  Company Number: PHHY2013PH013879

PATIENT
  Age: 39 Year
  Sex: Female

DRUGS (4)
  1. THIAMAZOLE [Suspect]
     Indication: BASEDOW^S DISEASE
     Dosage: 40 MG, PER DAY
  2. THIAMAZOLE [Suspect]
     Indication: HYPERTHYROIDISM
  3. PROPRANOLOL [Concomitant]
     Dosage: 60 MG, PER DAY
  4. PROPRANOLOL [Concomitant]
     Dosage: 120 MG, PER DAY

REACTIONS (10)
  - Ventricular tachyarrhythmia [Unknown]
  - Cardio-respiratory arrest [Unknown]
  - Electrolyte imbalance [Recovered/Resolved]
  - Hypokalaemia [Unknown]
  - Hypomagnesaemia [Unknown]
  - Hypocalcaemia [Unknown]
  - Agranulocytosis [Unknown]
  - Pyrexia [Unknown]
  - Oropharyngeal pain [Unknown]
  - Pancytopenia [Unknown]
